FAERS Safety Report 13206507 (Version 1)
Quarter: 2017Q1

REPORT INFORMATION
  Report Type: Spontaneous
  Country: US (occurrence: US)
  Receive Date: 20170209
  Receipt Date: 20170209
  Transmission Date: 20170428
  Serious: No
  Sender: FDA-Public Use
  Company Number: US-SA-2016SA202768

PATIENT
  Age: 72 Year
  Sex: Female

DRUGS (7)
  1. LEVOTHYROXINE SODIUM. [Concomitant]
     Active Substance: LEVOTHYROXINE SODIUM
  2. ASPIRIN. [Concomitant]
     Active Substance: ASPIRIN
     Dosage: ASPIRIN 81 LOW DOSE
  3. ASTELIN [Concomitant]
     Active Substance: AZELASTINE HYDROCHLORIDE
  4. NORVASC [Concomitant]
     Active Substance: AMLODIPINE BESYLATE
  5. PRALUENT [Suspect]
     Active Substance: ALIROCUMAB
     Indication: HYPERCHOLESTEROLAEMIA
     Route: 058
  6. ALIROCUMAB PREFILLED PEN [Concomitant]
     Active Substance: ALIROCUMAB
     Indication: HYPERCHOLESTEROLAEMIA
     Route: 058
  7. VITAMIN D [Concomitant]
     Active Substance: CHOLECALCIFEROL

REACTIONS (2)
  - Injection site bruising [Unknown]
  - Abdominal discomfort [Unknown]
